FAERS Safety Report 6509212-4 (Version None)
Quarter: 2009Q4

REPORT INFORMATION
  Report Type: 
  Country: None (occurrence: None)
  Receive Date: 20091221
  Receipt Date: 20091217
  Transmission Date: 20100525
  Serious: Yes (Hospitalization)
  Sender: FDA-Public Use
  Company Number: US-B.I. PHARMACEUTICALS,INC./RIDGEFIELD-2009-BP-00364BP

PATIENT
  Sex: Female
  Weight: 78.02 kg

DRUGS (17)
  1. MIRAPEX [Suspect]
     Indication: RESTLESS LEGS SYNDROME
     Route: 048
     Dates: end: 20081024
  2. WARFARIN SODIUM [Concomitant]
     Dosage: 7.5 MG
     Dates: start: 20010401
  3. DIGOXIN [Concomitant]
     Indication: CARDIAC DISORDER
     Dosage: 250 MCG
     Dates: start: 20010401
  4. LIPITOR [Concomitant]
     Indication: CARDIAC DISORDER
     Dosage: 20 MG
     Dates: start: 20010401
  5. KEPPRA [Concomitant]
     Dates: start: 20010401
  6. DARVOCET [Concomitant]
  7. CLORAZEPATE DIPOTASSIUM [Concomitant]
     Indication: BONE DISORDER
  8. NITROGLYCERIN [Concomitant]
     Indication: CARDIAC DISORDER
  9. ZETIA [Concomitant]
     Indication: TACHYCARDIA
  10. FOLIC ACID [Concomitant]
     Indication: ANTICOAGULANT THERAPY
     Dosage: 1 MG
     Dates: start: 20010401
  11. GABAPENTIN [Concomitant]
     Dosage: 600 MG
     Dates: start: 20010401
  12. AMBIEN [Concomitant]
     Indication: SLEEP DISORDER
     Dates: start: 20010401
  13. LASIX [Concomitant]
     Indication: FLUID IMBALANCE
     Dosage: 40 MG
     Dates: start: 20010401
  14. LASIX [Concomitant]
     Indication: CARDIAC FAILURE CONGESTIVE
  15. KLOR-CON [Concomitant]
     Indication: ELECTROLYTE IMBALANCE
     Dosage: 40 MG
     Dates: start: 20010401
  16. TRICOR [Concomitant]
     Indication: CARDIAC DISORDER
     Dosage: 145 MG
     Dates: start: 20010401
  17. ASPIRIN [Concomitant]
     Indication: PROMOTION OF PERIPHERAL CIRCULATION
     Dosage: 85 MG
     Dates: start: 20010401

REACTIONS (26)
  - ATELECTASIS [None]
  - BACK PAIN [None]
  - CARDIOMEGALY [None]
  - CENTRAL VENOUS PRESSURE INCREASED [None]
  - CRYING [None]
  - DEPRESSION [None]
  - ECONOMIC PROBLEM [None]
  - EFFUSION [None]
  - EMOTIONAL DISTRESS [None]
  - FLUID OVERLOAD [None]
  - HEART RATE DECREASED [None]
  - HYPOTENSION [None]
  - INJURY [None]
  - INTERNATIONAL NORMALISED RATIO INCREASED [None]
  - LABORATORY TEST ABNORMAL [None]
  - LETHARGY [None]
  - MITRAL VALVE INCOMPETENCE [None]
  - OVERDOSE [None]
  - PAIN [None]
  - PATHOLOGICAL GAMBLING [None]
  - PNEUMONIA ASPIRATION [None]
  - SOMNOLENCE [None]
  - STRESS [None]
  - SUICIDAL IDEATION [None]
  - SUICIDE ATTEMPT [None]
  - TRICUSPID VALVE STENOSIS [None]
